FAERS Safety Report 4352892-2 (Version None)
Quarter: 2004Q2

REPORT INFORMATION
  Report Type: 
  Country: None (occurrence: None)
  Receive Date: 20040430
  Receipt Date: 20040226
  Transmission Date: 20050107
  Serious: No
  Sender: FDA-Public Use
  Company Number: 204946

PATIENT
  Age: 49 Year
  Sex: Female
  Weight: 80 kg

DRUGS (6)
  1. XOLAIR [Suspect]
     Indication: ASTHMA
     Dosage: 300 MG, Q2W
     Dates: start: 20040219, end: 20040219
  2. ADVAIR (FLUTICASON PROPIONATE, SALMETEROL XINAFOATE) [Concomitant]
  3. PREDNISONE [Concomitant]
  4. SINGULAIR [Concomitant]
  5. LEVOXYL [Concomitant]
  6. ALBUTEROL (ALBUTEROL, ALBUTEROL SULFATE) [Concomitant]

REACTIONS (1)
  - INFLUENZA LIKE ILLNESS [None]
